FAERS Safety Report 19911904 (Version 1)
Quarter: 2021Q4

REPORT INFORMATION
  Report Type: Spontaneous
  Country: US (occurrence: US)
  Receive Date: 20211002
  Receipt Date: 20211002
  Transmission Date: 20220303
  Serious: No
  Sender: FDA-Public Use
  Company Number: None

PATIENT
  Age: 39 Year
  Sex: Female
  Weight: 56.25 kg

DRUGS (1)
  1. TINACTIN [Suspect]
     Active Substance: TOLNAFTATE
     Indication: Pruritus
     Dates: start: 20191101, end: 20191115

REACTIONS (3)
  - Condition aggravated [None]
  - Product packaging issue [None]
  - Product contamination [None]

NARRATIVE: CASE EVENT DATE: 20191101
